FAERS Safety Report 13155075 (Version 5)
Quarter: 2019Q1

REPORT INFORMATION
  Report Type: Spontaneous
  Country: US (occurrence: US)
  Receive Date: 20170126
  Receipt Date: 20190122
  Transmission Date: 20190417
  Serious: No
  Sender: FDA-Public Use
  Company Number: US-PFIZER INC-2017031909

PATIENT
  Age: 88 Year
  Sex: Female

DRUGS (5)
  1. TIMOLOL. [Concomitant]
     Active Substance: TIMOLOL
     Indication: GLAUCOMA
     Dosage: 1 GTT, 2X/DAY(OU BID)
  2. TRAVATAN [Suspect]
     Active Substance: TRAVOPROST
     Indication: OPEN ANGLE GLAUCOMA
     Dosage: 1 GTT, OU QHS
     Route: 047
  3. LATANOPROST. [Suspect]
     Active Substance: LATANOPROST
     Indication: OPEN ANGLE GLAUCOMA
     Dosage: 1 GTT, OU QHS
     Route: 047
  4. LUMIGAN [Suspect]
     Active Substance: BIMATOPROST
     Indication: OPEN ANGLE GLAUCOMA
     Dosage: 1 GTT, 1X/DAY(OU QHS)
     Route: 047
  5. BRIMONIDINE [Concomitant]
     Active Substance: BRIMONIDINE TARTRATE
     Indication: GLAUCOMA
     Dosage: 1 GTT, 2X/DAY(OU BID)

REACTIONS (3)
  - Intraocular pressure increased [Unknown]
  - Eye irritation [Recovered/Resolved]
  - Drug hypersensitivity [Unknown]
